FAERS Safety Report 7411661-7 (Version None)
Quarter: 2011Q2

REPORT INFORMATION
  Report Type: 
  Country: None (occurrence: None)
  Receive Date: 20110413
  Receipt Date: 20101014
  Transmission Date: 20111010
  Serious: No
  Sender: FDA-Public Use
  Company Number: US-BRISTOL-MYERS SQUIBB COMPANY-15337207

PATIENT
  Age: 71 Year
  Sex: Female

DRUGS (1)
  1. ERBITUX [Suspect]
     Dates: start: 20100501

REACTIONS (1)
  - DRY SKIN [None]
